FAERS Safety Report 9247564 (Version 1)
Quarter: 2013Q1

REPORT INFORMATION
  Report Type: Spontaneous
  Country: US (occurrence: None)
  Receive Date: 20121130
  Receipt Date: 20121130
  Transmission Date: 20140127
  Serious: Yes (Other)
  Sender: FDA-Public Use
  Company Number: 339501

PATIENT
  Age: 43 Year
  Sex: Female

DRUGS (1)
  1. NOVOLOG (INSULIN ASPART) SOLUTION FOR INJECTION, 100U/ML [Suspect]
     Indication: DIABETES MELLITUS
     Dosage: SUBCUTAN.-PUMP, SOLUTION FOR INJECTION

REACTIONS (4)
  - Rash pruritic [None]
  - Rash erythematous [None]
  - Skin reaction [None]
  - Injection site pain [None]
